FAERS Safety Report 25487895 (Version 1)
Quarter: 2025Q2

REPORT INFORMATION
  Report Type: Spontaneous
  Country: CN (occurrence: CN)
  Receive Date: 20250627
  Receipt Date: 20250627
  Transmission Date: 20250716
  Serious: Yes (Hospitalization, Other)
  Sender: HISUN PHARMACEUTICALS USA INC
  Company Number: CN-Hisun Pharmaceuticals USA Inc.-000476

PATIENT
  Age: 3 Year
  Sex: Female
  Weight: 15 kg

DRUGS (8)
  1. DACTINOMYCIN [Suspect]
     Active Substance: DACTINOMYCIN
     Indication: Hepatobiliary cancer
     Route: 042
     Dates: start: 20250530, end: 20250531
  2. VINCRISTINE [Suspect]
     Active Substance: VINCRISTINE
     Indication: Hepatobiliary cancer
     Route: 042
     Dates: start: 20250530, end: 20250530
  3. DOXORUBICIN HYDROCHLORIDE [Suspect]
     Active Substance: DOXORUBICIN HYDROCHLORIDE
     Indication: Hepatobiliary cancer
     Route: 042
     Dates: start: 20250530, end: 20250531
  4. CYCLOPHOSPHAMIDE [Suspect]
     Active Substance: CYCLOPHOSPHAMIDE
     Indication: Hepatobiliary cancer
     Route: 042
     Dates: start: 20250530, end: 20250602
  5. VINCRISTINE [Suspect]
     Active Substance: VINCRISTINE
     Indication: Embryonal rhabdomyosarcoma
     Route: 042
     Dates: start: 20250530, end: 20250530
  6. DACTINOMYCIN [Suspect]
     Active Substance: DACTINOMYCIN
     Indication: Embryonal rhabdomyosarcoma
     Route: 042
     Dates: start: 20250530, end: 20250531
  7. DOXORUBICIN HYDROCHLORIDE [Suspect]
     Active Substance: DOXORUBICIN HYDROCHLORIDE
     Indication: Embryonal rhabdomyosarcoma
     Route: 042
     Dates: start: 20250530, end: 20250531
  8. CYCLOPHOSPHAMIDE [Suspect]
     Active Substance: CYCLOPHOSPHAMIDE
     Indication: Embryonal rhabdomyosarcoma
     Route: 042
     Dates: start: 20250530, end: 20250602

REACTIONS (4)
  - Hyperpyrexia [Unknown]
  - Alopecia [Unknown]
  - Infection [Unknown]
  - Myelosuppression [Unknown]

NARRATIVE: CASE EVENT DATE: 20250609
